FAERS Safety Report 19212096 (Version 2)
Quarter: 2021Q2

REPORT INFORMATION
  Report Type: Other
  Country: CA (occurrence: CA)
  Receive Date: 20210504
  Receipt Date: 20210525
  Transmission Date: 20210717
  Serious: Yes (Other)
  Sender: FDA-Public Use
  Company Number: CA-CHIESI-2021CHF02134

PATIENT
  Age: 15 Year
  Sex: Male
  Weight: 56 kg

DRUGS (2)
  1. FERRIPROX [Suspect]
     Active Substance: DEFERIPRONE
     Dosage: 3000 MILLIGRAM, QD
     Route: 048
  2. FERRIPROX [Suspect]
     Active Substance: DEFERIPRONE
     Indication: OVERCHELATION
     Dosage: 2000 MILLIGRAM, QD
     Route: 048

REACTIONS (6)
  - Aspartate aminotransferase increased [Recovered/Resolved]
  - Serum ferritin abnormal [Recovered/Resolved]
  - Alanine aminotransferase increased [Recovered/Resolved]
  - Liver iron concentration abnormal [Recovered/Resolved]
  - Serum ferritin increased [Recovered/Resolved]
  - Drug ineffective [Recovered/Resolved]
